FAERS Safety Report 5339898-1 (Version None)
Quarter: 2007Q2

REPORT INFORMATION
  Report Type: 
  Country: None (occurrence: None)
  Receive Date: 20070531
  Receipt Date: 20070522
  Transmission Date: 20071010
  Serious: Yes (Hospitalization)
  Sender: FDA-Public Use
  Company Number: JP-ABBOTT-07P-087-0369207-00

PATIENT
  Sex: Male

DRUGS (3)
  1. CLARITHROMYCIN [Suspect]
     Indication: INFECTION
     Route: 048
     Dates: start: 20070428, end: 20070507
  2. PAZUFLOXACIN MESILATE [Suspect]
     Indication: INFECTION
     Route: 042
     Dates: start: 20070427, end: 20070504
  3. LEVOFLOXACIN [Suspect]
     Indication: INFECTION
     Route: 048
     Dates: start: 20070504, end: 20070519

REACTIONS (4)
  - ALANINE AMINOTRANSFERASE INCREASED [None]
  - ASPARTATE AMINOTRANSFERASE INCREASED [None]
  - LARGE INTESTINE CARCINOMA [None]
  - LIVER DISORDER [None]
